FAERS Safety Report 9763174 (Version 1)
Quarter: 2013Q4

REPORT INFORMATION
  Report Type: Spontaneous
  Country: US (occurrence: US)
  Receive Date: 20131216
  Receipt Date: 20131216
  Transmission Date: 20140711
  Serious: No
  Sender: FDA-Public Use
  Company Number: US-BIOGENIDEC-2013BI106338

PATIENT
  Age: 62 Year
  Sex: Female

DRUGS (10)
  1. TECFIDERA [Suspect]
     Indication: PRODUCT USED FOR UNKNOWN INDICATION
  2. COQ 10 [Concomitant]
  3. VITAMIN B 12 [Concomitant]
  4. VITAMIN D3 [Concomitant]
  5. LYRICA [Concomitant]
  6. ALENDRONATE [Concomitant]
  7. VESICARE [Concomitant]
  8. METFORMIN [Concomitant]
  9. FENOFIBRATE [Concomitant]
  10. TRAMADOL HCL [Concomitant]

REACTIONS (1)
  - Ligament sprain [Unknown]
